FAERS Safety Report 5115446-6 (Version None)
Quarter: 2006Q3

REPORT INFORMATION
  Report Type: 
  Country: None (occurrence: None)
  Receive Date: 20060922
  Receipt Date: 20060913
  Transmission Date: 20061208
  Serious: Yes (Death)
  Sender: FDA-Public Use
  Company Number: 2006-147704-NL

PATIENT
  Age: 43 Year
  Sex: Male

DRUGS (2)
  1. MIRTAZAPINE [Suspect]
     Indication: DEPRESSION
     Dosage: 30 MG
     Route: 048
     Dates: start: 20060705, end: 20060712
  2. ALPRAZOLAM [Concomitant]

REACTIONS (3)
  - COMPLETED SUICIDE [None]
  - HALLUCINATION [None]
  - SOMNOLENCE [None]
